FAERS Safety Report 4899773-3 (Version None)
Quarter: 2006Q1

REPORT INFORMATION
  Report Type: 
  Country: None (occurrence: None)
  Receive Date: 20060118
  Receipt Date: 20050524
  Transmission Date: 20060701
  Serious: No
  Sender: FDA-Public Use
  Company Number: 2005000959

PATIENT
  Age: 76 Year
  Sex: Female

DRUGS (1)
  1. TARCEVA [Suspect]
     Indication: LUNG NEOPLASM MALIGNANT
     Dosage: 150 MG (QD), ORAL
     Route: 048
     Dates: start: 20050506

REACTIONS (5)
  - COLOSTOMY [None]
  - DERMATITIS ACNEIFORM [None]
  - DIARRHOEA [None]
  - POST PROCEDURAL DISCOMFORT [None]
  - RASH [None]
